FAERS Safety Report 21705721 (Version 5)
Quarter: 2025Q4

REPORT INFORMATION
  Report Type: Spontaneous
  Country: CA (occurrence: CA)
  Receive Date: 20221209
  Receipt Date: 20251006
  Transmission Date: 20260118
  Serious: Yes (Other)
  Sender: MYLAN
  Company Number: CA-MYLANLABS-2022M1136109

PATIENT
  Age: 66 Year
  Sex: Male
  Weight: 66 kg

DRUGS (48)
  1. LYRICA [Suspect]
     Active Substance: PREGABALIN
     Indication: Product used for unknown indication
     Dosage: 67.8 MILLIGRAM
     Route: 065
  2. LYRICA [Suspect]
     Active Substance: PREGABALIN
     Dosage: 67.8 MILLIGRAM
  3. LYRICA [Suspect]
     Active Substance: PREGABALIN
     Dosage: 67.8 MILLIGRAM
  4. LYRICA [Suspect]
     Active Substance: PREGABALIN
     Dosage: 67.8 MILLIGRAM
     Route: 065
  5. LYRICA [Suspect]
     Active Substance: PREGABALIN
     Dosage: 25 MILLIGRAM, BID (2 EVERY 1 DAYS)
  6. LYRICA [Suspect]
     Active Substance: PREGABALIN
     Dosage: 25 MILLIGRAM, BID (2 EVERY 1 DAYS)
  7. LYRICA [Suspect]
     Active Substance: PREGABALIN
     Dosage: 25 MILLIGRAM, BID (2 EVERY 1 DAYS)
     Route: 065
  8. LYRICA [Suspect]
     Active Substance: PREGABALIN
     Dosage: 25 MILLIGRAM, BID (2 EVERY 1 DAYS)
     Route: 065
  9. LYRICA [Suspect]
     Active Substance: PREGABALIN
     Dosage: UNK
     Route: 065
  10. LYRICA [Suspect]
     Active Substance: PREGABALIN
     Dosage: UNK
  11. LYRICA [Suspect]
     Active Substance: PREGABALIN
     Dosage: UNK
  12. LYRICA [Suspect]
     Active Substance: PREGABALIN
     Dosage: UNK
     Route: 065
  13. PADCEV [Suspect]
     Active Substance: ENFORTUMAB VEDOTIN-EJFV
     Indication: Transitional cell carcinoma
     Dosage: 66 MILLIGRAM
     Route: 042
  14. PADCEV [Suspect]
     Active Substance: ENFORTUMAB VEDOTIN-EJFV
     Dosage: 66 MILLIGRAM
  15. PADCEV [Suspect]
     Active Substance: ENFORTUMAB VEDOTIN-EJFV
     Dosage: 66 MILLIGRAM
  16. PADCEV [Suspect]
     Active Substance: ENFORTUMAB VEDOTIN-EJFV
     Dosage: 66 MILLIGRAM
     Route: 042
  17. PADCEV [Suspect]
     Active Substance: ENFORTUMAB VEDOTIN-EJFV
     Dosage: 66.5 MILLIGRAM
     Route: 042
  18. PADCEV [Suspect]
     Active Substance: ENFORTUMAB VEDOTIN-EJFV
     Dosage: 66.5 MILLIGRAM
  19. PADCEV [Suspect]
     Active Substance: ENFORTUMAB VEDOTIN-EJFV
     Dosage: 66.5 MILLIGRAM
  20. PADCEV [Suspect]
     Active Substance: ENFORTUMAB VEDOTIN-EJFV
     Dosage: 66.5 MILLIGRAM
     Route: 042
  21. PADCEV [Suspect]
     Active Substance: ENFORTUMAB VEDOTIN-EJFV
     Dosage: 67.8 MILLIGRAM
     Route: 042
  22. PADCEV [Suspect]
     Active Substance: ENFORTUMAB VEDOTIN-EJFV
     Dosage: 67.8 MILLIGRAM
     Route: 042
  23. PADCEV [Suspect]
     Active Substance: ENFORTUMAB VEDOTIN-EJFV
     Dosage: 67.8 MILLIGRAM
  24. PADCEV [Suspect]
     Active Substance: ENFORTUMAB VEDOTIN-EJFV
     Dosage: 67.8 MILLIGRAM
  25. PADCEV [Suspect]
     Active Substance: ENFORTUMAB VEDOTIN-EJFV
     Indication: Transitional cell carcinoma
     Dosage: 66 MILLIGRAM
  26. PADCEV [Suspect]
     Active Substance: ENFORTUMAB VEDOTIN-EJFV
     Dosage: 66 MILLIGRAM
     Route: 065
  27. PADCEV [Suspect]
     Active Substance: ENFORTUMAB VEDOTIN-EJFV
     Dosage: 66 MILLIGRAM
     Route: 065
  28. PADCEV [Suspect]
     Active Substance: ENFORTUMAB VEDOTIN-EJFV
     Dosage: 66 MILLIGRAM
  29. ENFORTUMAB VEDOTIN [Suspect]
     Active Substance: ENFORTUMAB VEDOTIN
     Indication: Transitional cell carcinoma
     Dosage: 66 MILLIGRAM
  30. ENFORTUMAB VEDOTIN [Suspect]
     Active Substance: ENFORTUMAB VEDOTIN
     Dosage: 66 MILLIGRAM
  31. ENFORTUMAB VEDOTIN [Suspect]
     Active Substance: ENFORTUMAB VEDOTIN
     Dosage: 66 MILLIGRAM
     Route: 065
  32. ENFORTUMAB VEDOTIN [Suspect]
     Active Substance: ENFORTUMAB VEDOTIN
     Dosage: 66 MILLIGRAM
     Route: 065
  33. ENFORTUMAB VEDOTIN [Suspect]
     Active Substance: ENFORTUMAB VEDOTIN
     Dosage: 66.5 MILLIGRAM
  34. ENFORTUMAB VEDOTIN [Suspect]
     Active Substance: ENFORTUMAB VEDOTIN
     Dosage: 66.5 MILLIGRAM
  35. ENFORTUMAB VEDOTIN [Suspect]
     Active Substance: ENFORTUMAB VEDOTIN
     Dosage: 66.5 MILLIGRAM
     Route: 065
  36. ENFORTUMAB VEDOTIN [Suspect]
     Active Substance: ENFORTUMAB VEDOTIN
     Dosage: 66.5 MILLIGRAM
     Route: 065
  37. ENFORTUMAB VEDOTIN [Suspect]
     Active Substance: ENFORTUMAB VEDOTIN
     Dosage: 66 MILLIGRAM
  38. ENFORTUMAB VEDOTIN [Suspect]
     Active Substance: ENFORTUMAB VEDOTIN
     Dosage: 66 MILLIGRAM
     Route: 042
  39. ENFORTUMAB VEDOTIN [Suspect]
     Active Substance: ENFORTUMAB VEDOTIN
     Dosage: 66 MILLIGRAM
  40. ENFORTUMAB VEDOTIN [Suspect]
     Active Substance: ENFORTUMAB VEDOTIN
     Dosage: 66 MILLIGRAM
     Route: 042
  41. ENFORTUMAB VEDOTIN [Suspect]
     Active Substance: ENFORTUMAB VEDOTIN
     Indication: Transitional cell carcinoma
     Dosage: 67.8 MILLIGRAM
  42. ENFORTUMAB VEDOTIN [Suspect]
     Active Substance: ENFORTUMAB VEDOTIN
     Dosage: 67.8 MILLIGRAM
     Route: 042
  43. ENFORTUMAB VEDOTIN [Suspect]
     Active Substance: ENFORTUMAB VEDOTIN
     Dosage: 67.8 MILLIGRAM
     Route: 042
  44. ENFORTUMAB VEDOTIN [Suspect]
     Active Substance: ENFORTUMAB VEDOTIN
     Dosage: 67.8 MILLIGRAM
  45. INFLUENZA VIRUS VACCINE [Concomitant]
     Active Substance: INFLUENZA VIRUS VACCINE
     Dosage: UNK
  46. INFLUENZA VIRUS VACCINE [Concomitant]
     Active Substance: INFLUENZA VIRUS VACCINE
     Dosage: UNK
     Route: 065
  47. INFLUENZA VIRUS VACCINE [Concomitant]
     Active Substance: INFLUENZA VIRUS VACCINE
     Dosage: UNK
     Route: 065
  48. INFLUENZA VIRUS VACCINE [Concomitant]
     Active Substance: INFLUENZA VIRUS VACCINE
     Dosage: UNK

REACTIONS (20)
  - Neuropathy peripheral [Recovering/Resolving]
  - Nail discolouration [Recovering/Resolving]
  - Condition aggravated [Recovering/Resolving]
  - Stomatitis [Recovering/Resolving]
  - Grip strength decreased [Recovering/Resolving]
  - Treatment delayed [Recovering/Resolving]
  - Muscular weakness [Recovering/Resolving]
  - Nail bed disorder [Recovering/Resolving]
  - Oral pain [Recovering/Resolving]
  - Pain in extremity [Recovering/Resolving]
  - Weight decreased [Recovering/Resolving]
  - Balance disorder [Recovering/Resolving]
  - Dry mouth [Recovering/Resolving]
  - Fatigue [Recovering/Resolving]
  - Feeling abnormal [Recovering/Resolving]
  - Gait disturbance [Recovering/Resolving]
  - Joint stiffness [Recovering/Resolving]
  - Pain [Recovering/Resolving]
  - Paraesthesia [Recovering/Resolving]
  - Weight increased [Recovering/Resolving]

NARRATIVE: CASE EVENT DATE: 20221122
